FAERS Safety Report 7155948-4 (Version None)
Quarter: 2010Q4

REPORT INFORMATION
  Report Type: 
  Country: None (occurrence: None)
  Receive Date: 20101214
  Receipt Date: 20100921
  Transmission Date: 20110411
  Serious: No
  Sender: FDA-Public Use
  Company Number: US-MYLANLABS-2010S1017464

PATIENT
  Age: 63 Year
  Sex: Female

DRUGS (5)
  1. SUMATRIPTAN [Suspect]
     Dates: end: 20100901
  2. FLUVOXAMINE MALEATE [Suspect]
     Indication: OBSESSIVE-COMPULSIVE DISORDER
     Route: 048
     Dates: start: 20100830
  3. TOPROL-XL [Concomitant]
  4. KLONOPIN [Concomitant]
  5. SEROQUEL [Concomitant]

REACTIONS (3)
  - DRUG INTERACTION [None]
  - FALL [None]
  - MUSCULAR WEAKNESS [None]
